FAERS Safety Report 19151886 (Version 7)
Quarter: 2021Q2

REPORT INFORMATION
  Report Type: Spontaneous
  Country: US (occurrence: US)
  Receive Date: 20210419
  Receipt Date: 20210630
  Transmission Date: 20210717
  Serious: Yes (Death, Hospitalization, Other)
  Sender: FDA-Public Use
  Company Number: US-ROCHE-2812504

PATIENT
  Age: 60 Year
  Sex: Male
  Weight: 88.2 kg

DRUGS (51)
  1. CEFTRIAXONE. [Concomitant]
     Active Substance: CEFTRIAXONE
  2. AMLODIPINE [Concomitant]
     Active Substance: AMLODIPINE BESYLATE
     Dosage: TAKE 1 TABLET BY MOUTH ONE TIME A DAY (INCREASED DOSE)
     Route: 048
  3. NPH INSULIN [Concomitant]
     Active Substance: INSULIN BEEF
  4. IOHEXOL [Concomitant]
     Active Substance: IOHEXOL
  5. MAGNESIUM OXIDE. [Concomitant]
     Active Substance: MAGNESIUM OXIDE
  6. HEMLIBRA [Suspect]
     Active Substance: EMICIZUMAB-KXWH
     Indication: FACTOR VIII DEFICIENCY
     Route: 058
  7. ATORVASTATIN [Concomitant]
     Active Substance: ATORVASTATIN
     Route: 048
  8. FUROSEMIDE. [Concomitant]
     Active Substance: FUROSEMIDE
     Route: 048
  9. FAMOTIDINE. [Concomitant]
     Active Substance: FAMOTIDINE
  10. METHYLPREDNISOLONE. [Concomitant]
     Active Substance: METHYLPREDNISOLONE
  11. METRONIDAZOLE. [Concomitant]
     Active Substance: METRONIDAZOLE
  12. PHYTONADIONE. [Concomitant]
     Active Substance: PHYTONADIONE
  13. POLYETHYLENE GLYCOL 3350. [Concomitant]
     Active Substance: POLYETHYLENE GLYCOL 3350
  14. HEMLIBRA [Suspect]
     Active Substance: EMICIZUMAB-KXWH
     Indication: HAEMOPHILIA A WITH ANTI FACTOR VIII
     Dosage: 150 MG/ML
     Route: 058
     Dates: start: 20181025, end: 20210503
  15. ALBUMIN [Concomitant]
     Active Substance: ALBUMIN HUMAN
  16. ALBUTEROL. [Concomitant]
     Active Substance: ALBUTEROL
  17. MAGIC MOUTHWASH [DIPHENHYDRAMINE;LIDOCAINE] [Concomitant]
  18. MELATONIN [Concomitant]
     Active Substance: MELATONIN
  19. MIDAZOLAM. [Concomitant]
     Active Substance: MIDAZOLAM
  20. NOREPINEPHRINE. [Concomitant]
     Active Substance: NOREPINEPHRINE
  21. GADOBUTROL. [Concomitant]
     Active Substance: GADOBUTROL
  22. HYDROMORPHONE [Concomitant]
     Active Substance: HYDROMORPHONE
  23. TRAMADOL. [Concomitant]
     Active Substance: TRAMADOL
  24. METFORMIN [Concomitant]
     Active Substance: METFORMIN HYDROCHLORIDE
     Route: 048
  25. DEXMEDETOMIDINE. [Concomitant]
     Active Substance: DEXMEDETOMIDINE
  26. HYDRALAZINE [Concomitant]
     Active Substance: HYDRALAZINE HYDROCHLORIDE
  27. INSULIN REGULAR [Concomitant]
     Active Substance: INSULIN NOS
  28. ROCURONIUM [Concomitant]
     Active Substance: ROCURONIUM BROMIDE
  29. CARVEDILOL. [Concomitant]
     Active Substance: CARVEDILOL
     Route: 048
  30. LISINOPRIL. [Concomitant]
     Active Substance: LISINOPRIL
     Route: 048
  31. CEFEPIME [Concomitant]
     Active Substance: CEFEPIME HYDROCHLORIDE
  32. DEXTROSE. [Concomitant]
     Active Substance: DEXTROSE
  33. IPRATROPIUM [Concomitant]
     Active Substance: IPRATROPIUM
  34. LACTATED RINGERS SOLUTION [Concomitant]
     Active Substance: CALCIUM CHLORIDE\POTASSIUM CHLORIDE\SODIUM CHLORIDE\SODIUM LACTATE
  35. PANTOPRAZOLE [Concomitant]
     Active Substance: PANTOPRAZOLE
  36. TORSEMIDE. [Concomitant]
     Active Substance: TORSEMIDE
  37. VANCOMYCIN [Concomitant]
     Active Substance: VANCOMYCIN
  38. ERGOCALCIFEROL. [Concomitant]
     Active Substance: ERGOCALCIFEROL
     Dosage: 1,250 MCG (50,000 UNIT) CAPSULE
     Route: 048
  39. INSULIN [Concomitant]
     Active Substance: INSULIN NOS
     Dosage: INJECT 40 UNITS UNDER THE SKIN EVERY MORNING BEFORE BREAKFAST?AND 20 UNITS EVERY EVENING BEFORE DINN
  40. TYLENOL [Concomitant]
     Active Substance: ACETAMINOPHEN
  41. ALUMINUM HYDROXIDE. [Concomitant]
     Active Substance: ALUMINUM HYDROXIDE
  42. LORAZEPAM. [Concomitant]
     Active Substance: LORAZEPAM
  43. RENA?VITE [Concomitant]
     Active Substance: ASCORBIC ACID\BIOTIN\CALCIUM PANTOTHENATE\CYANOCOBALAMIN\FOLIC ACID\NIACINAMIDE\PYRIDOXINE HYDROCHLORIDE\RIBOFLAVIN\THIAMINE MONONITRATE
  44. PROPOFOL. [Concomitant]
     Active Substance: PROPOFOL
  45. SENNA [Concomitant]
     Active Substance: SENNA LEAF\SENNOSIDES\SENNOSIDES A AND B
  46. ARANESP [Concomitant]
     Active Substance: DARBEPOETIN ALFA
  47. ZOSYN [Concomitant]
     Active Substance: PIPERACILLIN SODIUM\TAZOBACTAM SODIUM
  48. SODIUM BICARBONATE. [Concomitant]
     Active Substance: SODIUM BICARBONATE
     Route: 048
  49. DESMOPRESSIN [Concomitant]
     Active Substance: DESMOPRESSIN
  50. FENTANYL. [Concomitant]
     Active Substance: FENTANYL
  51. POTASSIUM CHLORIDE. [Concomitant]
     Active Substance: POTASSIUM CHLORIDE

REACTIONS (22)
  - Dysphonia [Unknown]
  - Haemorrhage intracranial [Fatal]
  - Renal failure [Not Recovered/Not Resolved]
  - Hypertension [Recovered/Resolved]
  - Deep vein thrombosis [Unknown]
  - COVID-19 [Recovered/Resolved]
  - Liver injury [Not Recovered/Not Resolved]
  - Hypernatraemia [Unknown]
  - Cough [Unknown]
  - Pyrexia [Not Recovered/Not Resolved]
  - Dyspnoea [Unknown]
  - Rhabdomyolysis [Unknown]
  - Anaemia [Unknown]
  - Tachypnoea [Unknown]
  - Azotaemia [Unknown]
  - Haematoma [Not Recovered/Not Resolved]
  - Gingival bleeding [Unknown]
  - Mouth haemorrhage [Unknown]
  - Depressed level of consciousness [Not Recovered/Not Resolved]
  - Metabolic acidosis [Unknown]
  - Pneumonia bacterial [Recovered/Resolved]
  - Leukocytosis [Unknown]

NARRATIVE: CASE EVENT DATE: 20210331
